FAERS Safety Report 7549393-7 (Version None)
Quarter: 2011Q2

REPORT INFORMATION
  Report Type: 
  Country: None (occurrence: None)
  Receive Date: 20110615
  Receipt Date: 20031027
  Transmission Date: 20111010
  Serious: Yes (Other)
  Sender: FDA-Public Use
  Company Number: PHHO2003CA11957

PATIENT
  Sex: Male

DRUGS (2)
  1. CARDIZEM [Concomitant]
  2. DIOVAN [Suspect]

REACTIONS (1)
  - MYOCARDIAL INFARCTION [None]
